FAERS Safety Report 12779892 (Version 8)
Quarter: 2018Q4

REPORT INFORMATION
  Report Type: Spontaneous
  Country: US (occurrence: US)
  Receive Date: 20160926
  Receipt Date: 20181126
  Transmission Date: 20190204
  Serious: Yes (Other)
  Sender: FDA-Public Use
  Company Number: US-PFIZER INC-2016447910

PATIENT
  Age: 75 Year
  Sex: Female
  Weight: 51 kg

DRUGS (3)
  1. XELJANZ [Suspect]
     Active Substance: TOFACITINIB CITRATE
     Dosage: 5 MG, DAILY
     Route: 048
  2. XELJANZ [Suspect]
     Active Substance: TOFACITINIB CITRATE
     Indication: RHEUMATOID ARTHRITIS
     Dosage: 5 MG, 2X/DAY(WITH MEAL)
     Route: 048
     Dates: start: 20160829
  3. XELJANZ [Suspect]
     Active Substance: TOFACITINIB CITRATE
     Dosage: 5 MG, UNK

REACTIONS (6)
  - Thrombosis [Unknown]
  - Haemorrhage [Unknown]
  - Weight increased [Unknown]
  - Fall [Unknown]
  - Intentional product use issue [Unknown]
  - Diarrhoea [Recovered/Resolved]

NARRATIVE: CASE EVENT DATE: 20160902
